FAERS Safety Report 14376464 (Version 1)
Quarter: 2018Q1

REPORT INFORMATION
  Report Type: Spontaneous
  Country: US (occurrence: US)
  Receive Date: 20180110
  Receipt Date: 20180110
  Transmission Date: 20180509
  Serious: Yes (Death)
  Sender: FDA-Public Use
  Company Number: None

PATIENT
  Age: 101 Year
  Sex: Female

DRUGS (1)
  1. PROLIA [Suspect]
     Active Substance: DENOSUMAB
     Indication: SENILE OSTEOPOROSIS
     Dosage: 60MG/ML EVERY 6 MONTHS SUBCUTANEOUSLY
     Route: 058
     Dates: start: 20120614, end: 20170707

REACTIONS (1)
  - Death [None]

NARRATIVE: CASE EVENT DATE: 20171219
